FAERS Safety Report 6355890-2 (Version None)
Quarter: 2009Q3

REPORT INFORMATION
  Report Type: 
  Country: None (occurrence: None)
  Receive Date: 20090915
  Receipt Date: 20090907
  Transmission Date: 20100115
  Serious: Yes (Life-Threatening, Hospitalization)
  Sender: FDA-Public Use
  Company Number: JP-JNJFOC-20090806665

PATIENT
  Sex: Female

DRUGS (14)
  1. LEVOFLOXACIN [Suspect]
     Indication: PNEUMONIA
     Route: 048
     Dates: start: 20090724, end: 20090729
  2. AVELOX [Suspect]
     Indication: PNEUMONIA
     Route: 048
     Dates: start: 20090729, end: 20090801
  3. MUCOSOLVAN [Suspect]
     Indication: PNEUMONIA
     Route: 048
     Dates: start: 20090729, end: 20090801
  4. HOKUNALIN [Suspect]
     Indication: PNEUMONIA
     Route: 062
     Dates: start: 20090729, end: 20090801
  5. HUSTARGIN [Suspect]
     Indication: PNEUMONIA
     Route: 048
     Dates: start: 20090729, end: 20090801
  6. METHY F [Suspect]
     Indication: PNEUMONIA
     Route: 048
     Dates: start: 20090729, end: 20090801
  7. MEDICON [Suspect]
     Indication: PNEUMONIA
     Route: 048
     Dates: start: 20090729, end: 20090801
  8. SELBEX [Concomitant]
     Indication: GASTRIC ULCER
     Route: 048
  9. PEON [Concomitant]
     Indication: BACK PAIN
     Route: 048
  10. ARICEPT [Concomitant]
     Indication: DEMENTIA
     Route: 048
     Dates: end: 20090801
  11. AMLODIPINE [Concomitant]
     Indication: HYPERTENSION
     Route: 048
     Dates: end: 20090801
  12. ASPARTATE CALCIUM [Concomitant]
     Indication: OSTEOPOROSIS
     Route: 048
     Dates: end: 20090801
  13. ASPIRIN [Concomitant]
     Indication: CEREBRAL INFARCTION
     Route: 048
     Dates: end: 20090801
  14. PRORENAL [Concomitant]
     Indication: SCIATICA
     Route: 048
     Dates: end: 20090801

REACTIONS (3)
  - ANAPHYLACTOID REACTION [None]
  - OBSTRUCTIVE AIRWAYS DISORDER [None]
  - PNEUMONIA ASPIRATION [None]
